FAERS Safety Report 13875768 (Version 2)
Quarter: 2017Q3

REPORT INFORMATION
  Report Type: Spontaneous
  Country: IT (occurrence: IT)
  Receive Date: 20170817
  Receipt Date: 20170914
  Transmission Date: 20171127
  Serious: Yes (Life-Threatening)
  Sender: FDA-Public Use
  Company Number: IT-ROCHE-1977066

PATIENT
  Age: 82 Year
  Sex: Female

DRUGS (3)
  1. RIVOTRIL [Suspect]
     Active Substance: CLONAZEPAM
     Indication: PRODUCT USED FOR UNKNOWN INDICATION
     Dosage: 2.5 MG/ML, 10 ML BOTTLE
     Route: 048
     Dates: start: 20170801, end: 20170801
  2. XANAX [Concomitant]
     Active Substance: ALPRAZOLAM
     Route: 065
  3. DIBASE [Concomitant]
     Active Substance: CHOLECALCIFEROL
     Dosage: 25,000IU/2.5ML ORALSOLUTION 1VIAL CONTAINING 2.5ML
     Route: 065

REACTIONS (4)
  - Coma [Recovering/Resolving]
  - Miosis [Recovering/Resolving]
  - Loss of consciousness [Recovering/Resolving]
  - Medication error [Unknown]

NARRATIVE: CASE EVENT DATE: 20170801
